FAERS Safety Report 5815019-3 (Version None)
Quarter: 2008Q3

REPORT INFORMATION
  Report Type: 
  Country: None (occurrence: None)
  Receive Date: 20080718
  Receipt Date: 20080709
  Transmission Date: 20090109
  Serious: Yes (Life-Threatening, Hospitalization, Disabling)
  Sender: FDA-Public Use
  Company Number: B0521149A

PATIENT
  Age: 5 Year
  Sex: Male
  Weight: 30 kg

DRUGS (2)
  1. LAMICTAL [Suspect]
     Indication: EPILEPSY
     Dosage: 25MG PER DAY
     Route: 048
     Dates: start: 20080407, end: 20080417
  2. DEPAKENE [Concomitant]
     Indication: EPILEPSY
     Dosage: 400MG PER DAY
     Route: 048
     Dates: start: 20070101

REACTIONS (11)
  - ANAEMIA [None]
  - DERMATITIS BULLOUS [None]
  - EPIDERMAL NECROSIS [None]
  - HYPOALBUMINAEMIA [None]
  - HYPOPROTEINAEMIA [None]
  - LOWER RESPIRATORY TRACT INFECTION [None]
  - PAIN [None]
  - RASH [None]
  - SKIN EXFOLIATION [None]
  - SKIN LESION [None]
  - STEVENS-JOHNSON SYNDROME [None]
